FAERS Safety Report 5979893-2 (Version None)
Quarter: 2008Q4

REPORT INFORMATION
  Report Type: 
  Country: None (occurrence: None)
  Receive Date: 20081126
  Receipt Date: 20081112
  Transmission Date: 20090506
  Serious: Yes (Other)
  Sender: FDA-Public Use
  Company Number: 2008BI024086

PATIENT
  Age: 76 Year
  Sex: Female

DRUGS (12)
  1. ZEVALIN [Suspect]
     Indication: B-CELL LYMPHOMA
     Dosage: 1125 MBQ; X1; IV
     Route: 042
     Dates: start: 20080821, end: 20080821
  2. ZEVALIN [Suspect]
     Indication: MALIGNANT NEOPLASM PROGRESSION
     Dosage: 1125 MBQ; X1; IV
     Route: 042
     Dates: start: 20080821, end: 20080821
  3. RITUXIMAB [Concomitant]
  4. EMCONCOR [Concomitant]
  5. SIMVASTATIN [Concomitant]
  6. CYCLOPHOSPHAMIDE [Concomitant]
  7. DOXORUBICIN [Concomitant]
  8. VINCRISTINE [Concomitant]
  9. VINDESINE [Concomitant]
  10. PREDNISONE TAB [Concomitant]
  11. MABTHERA [Concomitant]
  12. LEUKERAN [Concomitant]

REACTIONS (10)
  - CATARACT [None]
  - CELL-MEDIATED CYTOTOXICITY [None]
  - CEREBELLAR ATROPHY [None]
  - CEREBRAL ATROPHY [None]
  - CEREBRAL ISCHAEMIA [None]
  - DEMYELINATION [None]
  - IMPAIRED DRIVING ABILITY [None]
  - LACUNAR INFARCTION [None]
  - REVERSIBLE POSTERIOR LEUKOENCEPHALOPATHY SYNDROME [None]
  - VISION BLURRED [None]
